FAERS Safety Report 7447922-5 (Version None)
Quarter: 2011Q2

REPORT INFORMATION
  Report Type: 
  Country: None (occurrence: None)
  Receive Date: 20110429
  Receipt Date: 20100616
  Transmission Date: 20111010
  Serious: No
  Sender: FDA-Public Use
  Company Number: US-ASTRAZENECA-2010SE09132

PATIENT
  Age: 46 Year
  Sex: Female

DRUGS (11)
  1. XANAX [Concomitant]
  2. OXYCONTIN [Concomitant]
  3. NEXIUM [Suspect]
     Indication: GASTROOESOPHAGEAL REFLUX DISEASE
     Route: 048
     Dates: start: 20000101
  4. KLONOPIN [Concomitant]
  5. PRILOSEC OTC [Suspect]
     Indication: GASTROOESOPHAGEAL REFLUX DISEASE
     Route: 048
     Dates: start: 20100101
  6. POTASSIUM [Concomitant]
  7. ALPREZALINE [Concomitant]
  8. LASIX [Concomitant]
  9. PROPRANOLOL [Concomitant]
  10. MORPHINE [Concomitant]
  11. EFFEXOR [Concomitant]

REACTIONS (3)
  - OSTEOPOROSIS [None]
  - DYSPEPSIA [None]
  - DRUG DOSE OMISSION [None]
